FAERS Safety Report 7375657-6 (Version None)
Quarter: 2011Q1

REPORT INFORMATION
  Report Type: 
  Country: None (occurrence: None)
  Receive Date: 20110325
  Receipt Date: 20110323
  Transmission Date: 20110831
  Serious: No
  Sender: FDA-Public Use
  Company Number: US-PFIZER INC-2011065031

PATIENT
  Sex: Male
  Weight: 78.912 kg

DRUGS (1)
  1. ADVIL PM [Suspect]
     Indication: SLEEP DISORDER
     Dosage: 200 MG, 2X/DAY
     Route: 048
     Dates: start: 20110322

REACTIONS (2)
  - FEELING ABNORMAL [None]
  - INCORRECT DOSE ADMINISTERED [None]
